FAERS Safety Report 6647343-9 (Version None)
Quarter: 2010Q1

REPORT INFORMATION
  Report Type: 
  Country: None (occurrence: None)
  Receive Date: 20100323
  Receipt Date: 20100319
  Transmission Date: 20100710
  Serious: Yes (Hospitalization)
  Sender: FDA-Public Use
  Company Number: B0641387A

PATIENT
  Sex: Female

DRUGS (3)
  1. AUGMENTIN '125' [Suspect]
     Indication: LUNG DISORDER
     Dosage: 1G THREE TIMES PER DAY
     Route: 042
     Dates: start: 20100220, end: 20100223
  2. AMOXICILLIN AND CLAVULANATE POTASSIUM [Suspect]
     Indication: LUNG DISORDER
     Dosage: 1G THREE TIMES PER DAY
     Route: 048
     Dates: start: 20100224, end: 20100226
  3. NEXIUM [Concomitant]
     Dosage: 1UNIT PER DAY
     Route: 048
     Dates: start: 20100220, end: 20100226

REACTIONS (1)
  - BAND NEUTROPHIL COUNT DECREASED [None]
